FAERS Safety Report 13179353 (Version 2)
Quarter: 2017Q1

REPORT INFORMATION
  Report Type: Spontaneous
  Country: JP (occurrence: JP)
  Receive Date: 20170202
  Receipt Date: 20170309
  Transmission Date: 20170428
  Serious: Yes (Hospitalization)
  Sender: FDA-Public Use
  Company Number: JP-PFIZER INC-2016582988

PATIENT
  Age: 73 Year
  Sex: Female
  Weight: 70 kg

DRUGS (12)
  1. TRAMAL [Concomitant]
     Active Substance: TRAMADOL
     Indication: BACK PAIN
     Dosage: 25 MG, 2X/DAY
     Route: 048
     Dates: start: 20151104
  2. CHLORPHENESIN CARBAMATE [Concomitant]
     Active Substance: CHLORPHENESIN CARBAMATE
     Indication: BACK PAIN
     Dosage: 250 MG, 3X/DAY
     Route: 048
     Dates: start: 20080816
  3. CELECOX [Suspect]
     Active Substance: CELECOXIB
     Indication: BACK PAIN
     Dosage: 100 MG, DAILY
     Route: 048
     Dates: start: 20161005, end: 20161028
  4. CELECOX [Suspect]
     Active Substance: CELECOXIB
     Indication: PAIN IN EXTREMITY
  5. REBAMIPIDE [Concomitant]
     Active Substance: REBAMIPIDE
     Indication: BACK PAIN
     Dosage: 100 MG, 3X/DAY
     Route: 048
     Dates: start: 20080812
  6. ANPLAG [Concomitant]
     Active Substance: SARPOGRELATE
     Indication: BACK PAIN
     Dosage: 100 MG, 3X/DAY
     Route: 048
     Dates: start: 20081114
  7. CHLORPHENESIN CARBAMATE [Concomitant]
     Active Substance: CHLORPHENESIN CARBAMATE
     Indication: PAIN IN EXTREMITY
  8. DEPAS [Concomitant]
     Active Substance: ETIZOLAM
     Indication: PAIN IN EXTREMITY
  9. ANPLAG [Concomitant]
     Active Substance: SARPOGRELATE
     Indication: PAIN IN EXTREMITY
  10. REBAMIPIDE [Concomitant]
     Active Substance: REBAMIPIDE
     Indication: PAIN IN EXTREMITY
  11. DEPAS [Concomitant]
     Active Substance: ETIZOLAM
     Indication: BACK PAIN
     Dosage: 0.5 MG, 1X/DAY
     Route: 048
     Dates: start: 20130213
  12. TRAMAL [Concomitant]
     Active Substance: TRAMADOL
     Indication: PAIN IN EXTREMITY

REACTIONS (1)
  - Arteriospasm coronary [Recovered/Resolved]

NARRATIVE: CASE EVENT DATE: 20161028
